FAERS Safety Report 6021182-4 (Version None)
Quarter: 2008Q4

REPORT INFORMATION
  Report Type: 
  Country: None (occurrence: None)
  Receive Date: 20081229
  Receipt Date: 20081216
  Transmission Date: 20090506
  Serious: Yes (Other)
  Sender: FDA-Public Use
  Company Number: US-PFIZER INC-2008157529

PATIENT
  Sex: Female

DRUGS (2)
  1. CHANTIX [Suspect]
     Dates: start: 20081201, end: 20081201
  2. ZIPRASIDONE MESILATE [Concomitant]
     Dosage: UNK

REACTIONS (2)
  - AFFECTIVE DISORDER [None]
  - BIPOLAR DISORDER [None]
